FAERS Safety Report 22360037 (Version 2)
Quarter: 2023Q2

REPORT INFORMATION
  Report Type: Report from Study
  Country: EG (occurrence: EG)
  Receive Date: 20230524
  Receipt Date: 20230605
  Transmission Date: 20230722
  Serious: Yes (Other)
  Sender: FDA-Public Use
  Company Number: EG-002147023-NVSC2023EG116369

PATIENT
  Sex: Male

DRUGS (4)
  1. COSENTYX [Suspect]
     Active Substance: SECUKINUMAB
     Indication: Psoriatic arthropathy
     Dosage: 150 MG, Q2W (ONE PEN EVERY OTHER WEEK) (FROM 2 YEARS AGO)
     Route: 058
     Dates: start: 2015, end: 202212
  2. FLEXILAX [Concomitant]
     Indication: Analgesic therapy
     Dosage: 1 DOSAGE FORM, BID (ONE TAB AFTER LUNCH AND ONE TAB AFTER DINNER)
     Route: 065
     Dates: start: 2015
  3. COLCHICINE [Concomitant]
     Active Substance: COLCHICINE
     Indication: Product used for unknown indication
     Dosage: 1 DOSAGE FORM, BID (ONE TAB AFTER LUNCH AND ONE TAB AFTER DINNER)
     Route: 065
     Dates: start: 2015
  4. FLEZACOR [Concomitant]
     Indication: Product used for unknown indication
     Dosage: UNK (EVERY 6 MONTHS)
     Route: 065
     Dates: start: 2015

REACTIONS (7)
  - Skin lesion [Recovering/Resolving]
  - Joint swelling [Not Recovered/Not Resolved]
  - Finger deformity [Not Recovered/Not Resolved]
  - Inappropriate schedule of product administration [Unknown]
  - Drug ineffective [Not Recovered/Not Resolved]
  - Arthralgia [Unknown]
  - Metatarsalgia [Unknown]

NARRATIVE: CASE EVENT DATE: 20180101
